FAERS Safety Report 18325594 (Version 2)
Quarter: 2020Q4

REPORT INFORMATION
  Report Type: Spontaneous
  Country: US (occurrence: US)
  Receive Date: 20200929
  Receipt Date: 20201006
  Transmission Date: 20210113
  Serious: No
  Sender: FDA-Public Use
  Company Number: US-SA-2020SA264863

PATIENT

DRUGS (1)
  1. DUPIXENT [Suspect]
     Active Substance: DUPILUMAB
     Dosage: 300 MG, QOW
     Route: 058
     Dates: start: 201909

REACTIONS (5)
  - Eczema [Unknown]
  - Rash [Unknown]
  - Injection site pain [Unknown]
  - Pruritus [Unknown]
  - Skin discomfort [Unknown]

NARRATIVE: CASE EVENT DATE: 202003
